FAERS Safety Report 8204644-0 (Version None)
Quarter: 2012Q1

REPORT INFORMATION
  Report Type: 
  Country: None (occurrence: None)
  Receive Date: 20120309
  Receipt Date: 20120302
  Transmission Date: 20120608
  Serious: Yes (Disabling)
  Sender: FDA-Public Use
  Company Number: AUR-APL-2012-01265

PATIENT
  Age: 72 Year
  Sex: Female
  Weight: 82.55 kg

DRUGS (15)
  1. HYPROMELLOSE (HYPROMELLOSE) [Concomitant]
  2. ALENDRONIC ACID (ALENDRONIC ACID) [Concomitant]
  3. PREDNISOLONE [Concomitant]
  4. VALSARTAN [Concomitant]
  5. VENTOLIN [Concomitant]
  6. BELOMETASONE (BECLOMETASONE) [Concomitant]
  7. LANSOPRAZOLE [Concomitant]
  8. DOXYCYCLINE [Concomitant]
  9. SIMVASTATIN [Suspect]
     Indication: PRODUCT USED FOR UNKNOWN INDICATION
     Dosage: UNKNOWN
     Dates: start: 20111027
  10. BENDROFLUMETHIAZIDE (BENDROFLUMETHIAZIDE) [Concomitant]
  11. CLENIL MODULITE (VENTIDE /01805401/) [Concomitant]
  12. FOLIC ACID [Concomitant]
  13. METHOTREXATE [Concomitant]
  14. DICLOFENAC SODIUM [Concomitant]
  15. CALCIUM CARBONATE [Concomitant]

REACTIONS (1)
  - PAIN [None]
